FAERS Safety Report 23047652 (Version 3)
Quarter: 2023Q4

REPORT INFORMATION
  Report Type: Spontaneous
  Country: FR (occurrence: FR)
  Receive Date: 20231010
  Receipt Date: 20231211
  Transmission Date: 20240109
  Serious: Yes (Other)
  Sender: FDA-Public Use
  Company Number: None

PATIENT
  Age: 50 Year
  Sex: Female
  Weight: 82 kg

DRUGS (8)
  1. KEYTRUDA [Suspect]
     Active Substance: PEMBROLIZUMAB
     Indication: Triple negative breast cancer
     Dosage: PEMBROLIZUMAB 200 MG, QOW
     Route: 042
     Dates: start: 20230505
  2. PACLITAXEL [Suspect]
     Active Substance: PACLITAXEL
     Indication: Triple negative breast cancer
     Dosage: PACLITAXEL 156 MG HEBDOMADAIRE, QW
     Route: 042
     Dates: start: 20230505
  3. CARBOPLATIN [Suspect]
     Active Substance: CARBOPLATIN
     Indication: Triple negative breast cancer
     Dosage: AREA UNDER THE CURVE (AUC) 5 (DOSE ADMINISTERED: 700 MG)
     Route: 042
     Dates: start: 20230505, end: 20230529
  4. CARBOPLATIN [Suspect]
     Active Substance: CARBOPLATIN
     Dosage: AUC 4 (DOSE ADMINISTERED: 600 MG)
     Route: 042
     Dates: start: 20230619
  5. CLOBAZAM [Concomitant]
     Active Substance: CLOBAZAM
  6. BILASTINE [Concomitant]
     Active Substance: BILASTINE
  7. DESLORATADINE [Concomitant]
     Active Substance: DESLORATADINE
  8. D VIT [Concomitant]

REACTIONS (3)
  - Thrombocytopenia [Recovering/Resolving]
  - Anaemia [Recovering/Resolving]
  - Neutropenia [Recovering/Resolving]

NARRATIVE: CASE EVENT DATE: 20230525
